FAERS Safety Report 12082372 (Version 4)
Quarter: 2018Q4

REPORT INFORMATION
  Report Type: Report from Study
  Country: US (occurrence: US)
  Receive Date: 20160217
  Receipt Date: 20181023
  Transmission Date: 20190204
  Serious: Yes (Other)
  Sender: FDA-Public Use
  Company Number: US-AMGEN-USASL2016018472

PATIENT
  Age: 36 Year
  Sex: Male

DRUGS (2)
  1. ENBREL [Suspect]
     Active Substance: ETANERCEPT
     Dosage: UNK UNK, QMO
     Route: 065
  2. ENBREL [Suspect]
     Active Substance: ETANERCEPT
     Indication: ANKYLOSING SPONDYLITIS
     Dosage: 50 MG, QWK
     Route: 065
     Dates: start: 2001

REACTIONS (9)
  - Inappropriate schedule of product administration [Unknown]
  - Steroid diabetes [Unknown]
  - Rheumatoid arthritis [Unknown]
  - Skin disorder [Unknown]
  - Osteoporosis [Unknown]
  - Balance disorder [Unknown]
  - Blindness [Unknown]
  - Abdominal distension [Unknown]
  - Gait disturbance [Unknown]

NARRATIVE: CASE EVENT DATE: 2006
